FAERS Safety Report 5036869-X (Version None)
Quarter: 2006Q2

REPORT INFORMATION
  Report Type: 
  Country: None (occurrence: None)
  Receive Date: 20060601
  Receipt Date: 20060329
  Transmission Date: 20061013
  Serious: Yes (Other)
  Sender: FDA-Public Use
  Company Number: US200604000475

PATIENT
  Sex: Male

DRUGS (3)
  1. CYMBALTA [Suspect]
     Dosage: 60 MG
     Dates: start: 20051201, end: 20051201
  2. VALIUM /NET/ (DIAZEPAM) [Concomitant]
  3. DARVON (HCL) (PROPOXYPHENE HYDROCHLORIDE UNKNOWN MANUFACTURER) [Concomitant]

REACTIONS (1)
  - LOSS OF CONSCIOUSNESS [None]
